FAERS Safety Report 21434385 (Version 1)
Quarter: 2022Q4

REPORT INFORMATION
  Report Type: Spontaneous
  Country: DE (occurrence: DE)
  Receive Date: 20221010
  Receipt Date: 20221010
  Transmission Date: 20230113
  Serious: No
  Sender: FDA-Public Use
  Company Number: DE-ALKEM LABORATORIES LIMITED-DE-ALKEM-2022-08764

PATIENT
  Age: 84 Year
  Sex: Female
  Weight: 54 kg

DRUGS (2)
  1. IBUPROFEN [Suspect]
     Active Substance: IBUPROFEN
     Indication: Headache
     Dosage: 400 MILLIGRAM
     Route: 065
     Dates: start: 20220720
  2. IBUPROFEN [Suspect]
     Active Substance: IBUPROFEN
     Indication: Neck pain

REACTIONS (2)
  - Drug ineffective [Unknown]
  - Crying [Unknown]
